FAERS Safety Report 19132299 (Version 1)
Quarter: 2021Q2

REPORT INFORMATION
  Report Type: Spontaneous
  Country: US (occurrence: US)
  Receive Date: 20210413
  Receipt Date: 20210413
  Transmission Date: 20210717
  Serious: Yes (Death, Hospitalization, Other)
  Sender: FDA-Public Use
  Company Number: US-TEVA-2021-US-1878842

PATIENT
  Sex: Male

DRUGS (29)
  1. HYDROCODONE/ACETAMINOPHEN [Suspect]
     Active Substance: ACETAMINOPHEN\HYDROCODONE
     Indication: ARTHRALGIA
  2. OXYCODONE/ACETAMINOPHEN [Suspect]
     Active Substance: ACETAMINOPHEN\OXYCODONE HYDROCHLORIDE
     Indication: ARTHRALGIA
  3. HYDROCODONE [Suspect]
     Active Substance: HYDROCODONE
     Indication: BACK PAIN
     Route: 064
  4. HYDROCODONE [Suspect]
     Active Substance: HYDROCODONE
     Indication: ARTHRALGIA
  5. HYDROCODONE [Suspect]
     Active Substance: HYDROCODONE
     Indication: SPINAL PAIN
  6. LYRICA [Concomitant]
     Active Substance: PREGABALIN
     Indication: SEIZURE
     Route: 064
  7. SEROQUEL [Concomitant]
     Active Substance: QUETIAPINE FUMARATE
     Indication: AFFECTIVE DISORDER
     Route: 064
  8. XANAX [Concomitant]
     Active Substance: ALPRAZOLAM
     Indication: AFFECTIVE DISORDER
     Route: 064
  9. OXYCODONE/ACETAMINOPHEN [Suspect]
     Active Substance: ACETAMINOPHEN\OXYCODONE HYDROCHLORIDE
     Indication: BACK PAIN
     Dosage: OXYCODONE 10MG/ ACETAMINOPHEN 325 MG
     Route: 064
  10. AMBIEN [Concomitant]
     Active Substance: ZOLPIDEM TARTRATE
     Route: 064
  11. ACETAMINOPHEN W/OXYCODONE [Suspect]
     Active Substance: ACETAMINOPHEN\OXYCODONE HYDROCHLORIDE
     Indication: ARTHRALGIA
  12. OXYCODONE/ACETAMINOPHEN [Suspect]
     Active Substance: ACETAMINOPHEN\OXYCODONE HYDROCHLORIDE
     Indication: ARTHRALGIA
  13. OXYCODONE/ACETAMINOPHEN [Suspect]
     Active Substance: ACETAMINOPHEN\OXYCODONE HYDROCHLORIDE
     Indication: SPINAL PAIN
  14. HYDROCODONE/ACETAMINOPHEN [Suspect]
     Active Substance: ACETAMINOPHEN\HYDROCODONE
     Indication: BACK PAIN
  15. OXYCODONE/ACETAMINOPHEN [Suspect]
     Active Substance: ACETAMINOPHEN\OXYCODONE HYDROCHLORIDE
     Indication: SPINAL PAIN
  16. OXYGEN. [Concomitant]
     Active Substance: OXYGEN
     Route: 064
  17. PROMETHAZINE HYDROCHLORIDE. [Concomitant]
     Active Substance: PROMETHAZINE HYDROCHLORIDE
     Indication: HYPERSENSITIVITY
     Route: 064
  18. PROMETHAZINE HYDROCHLORIDE. [Concomitant]
     Active Substance: PROMETHAZINE HYDROCHLORIDE
     Indication: ASTHMA
  19. COMBIVENT [Concomitant]
     Active Substance: ALBUTEROL SULFATE\IPRATROPIUM BROMIDE
     Indication: CHRONIC OBSTRUCTIVE PULMONARY DISEASE
     Route: 064
  20. ACETAMINOPHEN W/OXYCODONE [Suspect]
     Active Substance: ACETAMINOPHEN\OXYCODONE HYDROCHLORIDE
     Indication: BACK PAIN
     Dosage: OXYCODONE 10MG/ ACETAMINOPHEN 325 MG
     Route: 064
  21. ACETAMINOPHEN W/OXYCODONE [Suspect]
     Active Substance: ACETAMINOPHEN\OXYCODONE HYDROCHLORIDE
     Indication: SPINAL PAIN
  22. ACETAMINOPHEN W/HYDROCODONE [Suspect]
     Active Substance: ACETAMINOPHEN\HYDROCODONE
     Indication: SPINAL PAIN
  23. OXYCODONE/ACETAMINOPHEN [Suspect]
     Active Substance: ACETAMINOPHEN\OXYCODONE HYDROCHLORIDE
     Indication: BACK PAIN
     Dosage: OXYCODONE 10MG/ ACETAMINOPHEN 325 MG
     Route: 064
  24. ALBUTEROL. [Concomitant]
     Active Substance: ALBUTEROL
     Indication: CHRONIC OBSTRUCTIVE PULMONARY DISEASE
     Route: 064
  25. ACETAMINOPHEN W/HYDROCODONE [Suspect]
     Active Substance: ACETAMINOPHEN\HYDROCODONE
     Indication: BACK PAIN
     Dosage: HYDROCODONE 10MG/ACETAMINOPHEN 325 MG
     Route: 064
  26. ACETAMINOPHEN W/HYDROCODONE [Suspect]
     Active Substance: ACETAMINOPHEN\HYDROCODONE
     Indication: ARTHRALGIA
     Dosage: HYDROCODONE 5 MG/ACETAMINOPHEN 500 MG
     Route: 065
  27. HYDROCODONE/ACETAMINOPHEN [Suspect]
     Active Substance: ACETAMINOPHEN\HYDROCODONE
     Indication: SPINAL PAIN
     Dosage: HYDROCODONE 7.5 MG/ACETAMINOPHEN 325 MG
     Route: 064
  28. METHADONE [Suspect]
     Active Substance: METHADONE HYDROCHLORIDE
     Indication: DRUG DEPENDENCE
     Route: 064
  29. QUETIAPINE FUMARATE. [Concomitant]
     Active Substance: QUETIAPINE FUMARATE
     Indication: AFFECTIVE DISORDER
     Route: 064

REACTIONS (8)
  - Amblyopia [Not Recovered/Not Resolved]
  - Hyperbilirubinaemia [Unknown]
  - Low birth weight baby [Unknown]
  - Premature baby [Unknown]
  - Tachypnoea [Recovered/Resolved]
  - Foetal exposure during pregnancy [Unknown]
  - Drug withdrawal syndrome neonatal [Recovered/Resolved]
  - Learning disorder [Not Recovered/Not Resolved]

NARRATIVE: CASE EVENT DATE: 20170529
